FAERS Safety Report 7798130-X (Version None)
Quarter: 2011Q4

REPORT INFORMATION
  Report Type: 
  Country: None (occurrence: None)
  Receive Date: 20111005
  Receipt Date: 20110929
  Transmission Date: 20120403
  Serious: Yes (Other)
  Sender: FDA-Public Use
  Company Number: PK-PFIZER INC-2011201953

PATIENT
  Age: 62 Year
  Sex: Male

DRUGS (9)
  1. SERTRALINE HYDROCHLORIDE [Suspect]
     Indication: SLEEP DISORDER
  2. SERTRALINE HYDROCHLORIDE [Suspect]
     Indication: DEPRESSION
     Dosage: 50 MG, DAILY
  3. RISPERIDONE [Suspect]
     Indication: INSOMNIA
     Dosage: 1 MG, DAILY
  4. SERTRALINE HYDROCHLORIDE [Suspect]
     Indication: IRRITABILITY
     Dosage: 100 MG, DAILY
     Dates: start: 20080601
  5. RISPERIDONE [Suspect]
     Indication: HYPOMANIA
     Dosage: 0.5 MG, UNK
  6. QUETIAPINE [Suspect]
     Dosage: 100 MG, DAILY
     Dates: start: 20080101, end: 20080401
  7. PROPRANOLOL [Suspect]
     Dosage: 30 MG, DAILY
     Dates: end: 20080401
  8. RISPERIDONE [Suspect]
     Dosage: 1 MG, DAILY
  9. MIANSERIN [Concomitant]
     Indication: INSOMNIA
     Dosage: UNK

REACTIONS (4)
  - EXTRAPYRAMIDAL DISORDER [None]
  - HYPOMANIA [None]
  - RESPIRATORY DYSKINESIA [None]
  - DYSPNOEA [None]
